FAERS Safety Report 6811237-6 (Version None)
Quarter: 2010Q2

REPORT INFORMATION
  Report Type: 
  Country: None (occurrence: None)
  Receive Date: 20100630
  Receipt Date: 20090914
  Transmission Date: 20101027
  Serious: No
  Sender: FDA-Public Use
  Company Number: US-AMGEN-KDL365182

PATIENT
  Sex: Female

DRUGS (15)
  1. PROCRIT [Suspect]
     Indication: ANAEMIA
     Dates: start: 20090201
  2. METHOTREXATE [Concomitant]
  3. CRESTOR [Concomitant]
  4. AMLODIPINE [Concomitant]
  5. FOLIC ACID [Concomitant]
  6. POTASSIUM [Concomitant]
  7. DILTIAZEM [Concomitant]
  8. HUMULIN R [Concomitant]
  9. DIOVAN [Concomitant]
  10. LASIX [Concomitant]
  11. PREVACID [Concomitant]
  12. LEVOTHYROXINE SODIUM [Concomitant]
  13. ISOSORBIDE [Concomitant]
  14. IRON [Concomitant]
     Route: 048
  15. OSCAL [Concomitant]

REACTIONS (2)
  - MASS [None]
  - WEIGHT DECREASED [None]
